FAERS Safety Report 8950318 (Version 1)
Quarter: 2012Q4

REPORT INFORMATION
  Report Type: Spontaneous
  Country: US (occurrence: None)
  Receive Date: 20121130
  Receipt Date: 20121130
  Transmission Date: 20130627
  Serious: Yes (Other)
  Sender: FDA-Public Use
  Company Number: None

PATIENT
  Age: 55 Year
  Sex: Female

DRUGS (5)
  1. RISPERIDONE [Suspect]
     Dates: start: 20121026, end: 20121128
  2. CLONAZEPAM [Concomitant]
  3. CLONIDINE [Concomitant]
  4. BENADRYL [Concomitant]
  5. ZYPREXA [Concomitant]

REACTIONS (6)
  - Candidiasis [None]
  - Dry mouth [None]
  - Muscular weakness [None]
  - Urinary incontinence [None]
  - Dehydration [None]
  - Unevaluable event [None]
